FAERS Safety Report 19004680 (Version 6)
Quarter: 2021Q2

REPORT INFORMATION
  Report Type: Report from Study
  Country: PL (occurrence: PL)
  Receive Date: 20210312
  Receipt Date: 20210430
  Transmission Date: 20210717
  Serious: Yes (Hospitalization)
  Sender: FDA-Public Use
  Company Number: PL-EISAI MEDICAL RESEARCH-EC-2021-089339

PATIENT
  Age: 74 Year
  Sex: Female
  Weight: 56.6 kg

DRUGS (13)
  1. LENVATINIB [Suspect]
     Active Substance: LENVATINIB
     Indication: HEPATOCELLULAR CARCINOMA
     Dosage: STARTING DOSE AT 8 MG (BODY WEIGHT (BW) {60 KG), FLUCTUATED DOSE
     Route: 048
     Dates: start: 20200407, end: 20210216
  2. URSOPOL [Concomitant]
     Dates: start: 20200423
  3. LENVATINIB [Suspect]
     Active Substance: LENVATINIB
     Route: 048
     Dates: start: 20210217, end: 20210225
  4. CALPEROS OSTEO [Concomitant]
     Dates: start: 201001
  5. PEMBROLIZUMAB. [Suspect]
     Active Substance: PEMBROLIZUMAB
     Indication: HEPATOCELLULAR CARCINOMA
     Route: 041
     Dates: start: 20200407, end: 20210128
  6. OSSICA [Concomitant]
     Active Substance: IBANDRONATE SODIUM
     Dates: start: 201001
  7. PROPRANOLOL [Concomitant]
     Active Substance: PROPRANOLOL HYDROCHLORIDE
     Dates: start: 201307
  8. MAGNEZIN COMFORT [Concomitant]
     Dates: start: 20200423
  9. FUROSEMIDE. [Suspect]
     Active Substance: FUROSEMIDE
     Indication: ASCITES
     Route: 048
     Dates: start: 20210217
  10. CIPROPOL [Concomitant]
     Dates: start: 20210217, end: 20210224
  11. PEMBROLIZUMAB. [Suspect]
     Active Substance: PEMBROLIZUMAB
     Route: 041
     Dates: start: 20210217, end: 20210217
  12. SPIRANOLOL [Concomitant]
     Dates: start: 201307
  13. HEPA?MERZ [Concomitant]
     Dates: start: 20200418

REACTIONS (1)
  - Dehydration [Recovered/Resolved with Sequelae]

NARRATIVE: CASE EVENT DATE: 20210226
